FAERS Safety Report 8728323 (Version 2)
Quarter: 2012Q4

REPORT INFORMATION
  Report Type: 
  Country: US (occurrence: US)
  Receive Date: 20120817
  Receipt Date: 20120912
  Transmission Date: 20130627
  Serious: Yes (Hospitalization)
  Sender: FDA-Public Use
  Company Number: US-BAYER-2012-082432

PATIENT
  Age: 53 Year
  Sex: Female
  Weight: 74.83 kg

DRUGS (5)
  1. YAZ [Suspect]
  2. ANUSOL-HC [HYDROCORTISONE ACETATE] [Concomitant]
     Indication: HAEMORRHOIDS
     Dosage: 25 mg, PRN
  3. FLONASE [Concomitant]
     Dosage: 50 mcg/24hr, UNK
     Route: 045
  4. PREVACID [Concomitant]
     Indication: ABDOMINAL PAIN UPPER
     Dosage: 30 mg, daily
     Route: 048
  5. PREVACID [Concomitant]
     Indication: DYSPEPSIA

REACTIONS (2)
  - Pulmonary embolism [None]
  - Deep vein thrombosis [None]
